FAERS Safety Report 10214621 (Version 2)
Quarter: 2014Q2

REPORT INFORMATION
  Report Type: Spontaneous
  Country: CZ (occurrence: NP)
  Receive Date: 20140603
  Receipt Date: 20140609
  Transmission Date: 20141212
  Serious: Yes (Other)
  Sender: FDA-Public Use
  Company Number: CZ-GLAXOSMITHKLINE-B0999320A

PATIENT
  Age: 58 Year
  Sex: Female

DRUGS (1)
  1. AVAMYS [Suspect]
     Indication: RHINITIS ALLERGIC
     Route: 045
     Dates: start: 20140320

REACTIONS (5)
  - Bronchopneumonia [Recovered/Resolved]
  - Cough [Recovered/Resolved]
  - Pyrexia [Recovered/Resolved]
  - Fatigue [Unknown]
  - Asthenia [Unknown]
